FAERS Safety Report 23916772 (Version 2)
Quarter: 2024Q3

REPORT INFORMATION
  Report Type: Report from Study
  Country: CN (occurrence: CN)
  Receive Date: 20240529
  Receipt Date: 20240703
  Transmission Date: 20241017
  Serious: Yes (Hospitalization)
  Sender: ABBVIE
  Company Number: CN-ABBVIE-5772961

PATIENT
  Age: 36 Year
  Sex: Female
  Weight: 82 kg

DRUGS (13)
  1. HUMIRA [Suspect]
     Active Substance: ADALIMUMAB
     Indication: Crohn^s disease
     Dosage: FORM STRENGTH: 40MG
     Route: 058
     Dates: start: 20230627, end: 20231128
  2. HUMIRA [Suspect]
     Active Substance: ADALIMUMAB
     Dosage: FORM STRENGTH: 40MG
     Route: 058
     Dates: start: 20230613, end: 20230613
  3. HUMIRA [Suspect]
     Active Substance: ADALIMUMAB
     Dosage: FORM STRENGTH: 40MG
     Route: 058
     Dates: start: 20230530, end: 20230530
  4. FUSAMINE MALEATE [Concomitant]
     Indication: Obsessive-compulsive disorder
     Dosage: 300 MILLIGRAM EVERY NIGHT
     Route: 048
     Dates: start: 20210704
  5. LEVOCETIRIZINE DIHYDROCHLORIDE [Concomitant]
     Active Substance: LEVOCETIRIZINE DIHYDROCHLORIDE
     Indication: Urticaria
     Dosage: 5 MILLIGRAM?TABLET
     Route: 048
     Dates: start: 2021
  6. Enteral Nutritional Powder (TP) [Concomitant]
     Indication: Crohn^s disease
     Dates: start: 20230530
  7. FLUVOXAMINE MALEATE [Concomitant]
     Active Substance: FLUVOXAMINE MALEATE
     Indication: Obsessive-compulsive disorder
     Dosage: 300 MILLIGRAM, EVERY NIGHT
     Route: 048
     Dates: start: 20210704
  8. MUCOPOLYSACCHARIDE POLYSULFATE [Concomitant]
     Indication: Erysipelas
  9. PENGREEN [Concomitant]
     Indication: Eczema
  10. IBUPROFEN [Concomitant]
     Active Substance: IBUPROFEN
     Indication: Upper respiratory tract infection
  11. DEXTROSE AND SODIUM CHLORIDE [Concomitant]
     Active Substance: DEXTROSE MONOHYDRATE\SODIUM CHLORIDE
     Indication: Gastrointestinal perforation
  12. HALOMETASONE [Concomitant]
     Active Substance: HALOMETASONE
     Indication: Keloid scar
     Dates: start: 20230627
  13. CEFUROXIME SODIUM [Concomitant]
     Active Substance: CEFUROXIME SODIUM
     Indication: Upper respiratory tract infection

REACTIONS (5)
  - Gastrointestinal perforation [Recovered/Resolved]
  - Erysipelas [Recovering/Resolving]
  - Upper respiratory tract infection [Recovered/Resolved]
  - Eczema [Not Recovered/Not Resolved]
  - Oedema [Not Recovered/Not Resolved]

NARRATIVE: CASE EVENT DATE: 20230919
